FAERS Safety Report 17848486 (Version 2)
Quarter: 2020Q3

REPORT INFORMATION
  Report Type: Report from Study
  Country: US (occurrence: US)
  Receive Date: 20200602
  Receipt Date: 20200722
  Transmission Date: 20201103
  Serious: Yes (Hospitalization)
  Sender: FDA-Public Use
  Company Number: US-EXELIXIS-XL18420030204

PATIENT
  Age: 67 Year
  Sex: Male
  Weight: 96.6 kg

DRUGS (13)
  1. ATEZOLIZUMAB. [Suspect]
     Active Substance: ATEZOLIZUMAB
     Indication: GASTRIC CANCER
     Dosage: 1200 MG, Q3WEEKS
     Route: 042
     Dates: start: 20200507
  2. OMEPRAZOLE. [Concomitant]
     Active Substance: OMEPRAZOLE
  3. METOCLOPRAMIDE. [Concomitant]
     Active Substance: METOCLOPRAMIDE
  4. LOVENOX [Concomitant]
     Active Substance: ENOXAPARIN SODIUM
  5. MORPHIE [Concomitant]
  6. TAMSULOSIN [Concomitant]
     Active Substance: TAMSULOSIN
  7. ONDANSETRON [Concomitant]
     Active Substance: ONDANSETRON
  8. INSULIN [Concomitant]
     Active Substance: INSULIN NOS
  9. MIRTAZAPINE. [Concomitant]
     Active Substance: MIRTAZAPINE
  10. BUPROPION. [Concomitant]
     Active Substance: BUPROPION
  11. XL184 [Suspect]
     Active Substance: CABOZANTINIB
     Indication: GASTRIC CANCER
     Dosage: 40 MG, QD
     Route: 048
     Dates: start: 20200507
  12. SUCRALFATE. [Concomitant]
     Active Substance: SUCRALFATE
  13. SENNA [Concomitant]
     Active Substance: SENNA LEAF\SENNOSIDES\SENNOSIDES A AND B

REACTIONS (1)
  - Neuroleptic malignant syndrome [Recovering/Resolving]

NARRATIVE: CASE EVENT DATE: 20200523
